FAERS Safety Report 26204326 (Version 1)
Quarter: 2025Q4

REPORT INFORMATION
  Report Type: Spontaneous
  Country: US (occurrence: US)
  Receive Date: 20251226
  Receipt Date: 20251226
  Transmission Date: 20260118
  Serious: Yes (Other)
  Sender: VERASTEM
  Company Number: US-VERASTEM-251218US-AFCPK-00975

PATIENT

DRUGS (1)
  1. AVMAPKI FAKZYNJA CO-PACK [Suspect]
     Active Substance: AVUTOMETINIB POTASSIUM\DEFACTINIB HYDROCHLORIDE
     Indication: Product used for unknown indication
     Dosage: AVMAPKI 0.8 MG AND FAKYNZA 200 MG , TWO TIMES WEEKLY
     Route: 048

REACTIONS (5)
  - Muscular weakness [Unknown]
  - Pain [Unknown]
  - Purpura [Unknown]
  - Fatigue [Unknown]
  - Alopecia [Unknown]
